FAERS Safety Report 7293804-1 (Version None)
Quarter: 2011Q1

REPORT INFORMATION
  Report Type: 
  Country: None (occurrence: None)
  Receive Date: 20110215
  Receipt Date: 20110208
  Transmission Date: 20110831
  Serious: Yes (Hospitalization)
  Sender: FDA-Public Use
  Company Number: US-ABBOTT-11P-163-0704041-00

PATIENT
  Sex: Female
  Weight: 72.186 kg

DRUGS (2)
  1. LIPITOR [Concomitant]
     Indication: BLOOD CHOLESTEROL INCREASED
  2. HUMIRA [Suspect]
     Indication: RHEUMATOID ARTHRITIS
     Dates: start: 20020101, end: 20110101

REACTIONS (11)
  - PULMONARY OEDEMA [None]
  - FATIGUE [None]
  - DYSPNOEA [None]
  - DEHYDRATION [None]
  - PNEUMONIA [None]
  - PULMONARY FIBROSIS [None]
  - INJECTION SITE PAIN [None]
  - DIARRHOEA [None]
  - MOBILITY DECREASED [None]
  - INTERSTITIAL LUNG DISEASE [None]
  - DYSSTASIA [None]
